FAERS Safety Report 4581836-3 (Version None)
Quarter: 2005Q1

REPORT INFORMATION
  Report Type: 
  Country: None (occurrence: None)
  Receive Date: 20050214
  Receipt Date: 20040316
  Transmission Date: 20050727
  Serious: No
  Sender: FDA-Public Use
  Company Number: US-GLAXOSMITHKLINE-A0502978A

PATIENT
  Age: 38 Year
  Sex: Female

DRUGS (7)
  1. LAMICTAL [Suspect]
     Indication: BIPOLAR DISORDER
     Dosage: 300MG PER DAY
     Route: 048
     Dates: start: 20031001
  2. VIOXX [Concomitant]
  3. AMERGE [Concomitant]
  4. TYLENOL W/ CODEINE NO. 3 [Concomitant]
  5. ULTRACET [Concomitant]
  6. GEODON [Concomitant]
  7. LEXAPRO [Concomitant]

REACTIONS (2)
  - BALANCE DISORDER [None]
  - HEADACHE [None]
